FAERS Safety Report 16139387 (Version 2)
Quarter: 2019Q2

REPORT INFORMATION
  Report Type: Report from Study
  Country: GB (occurrence: GB)
  Receive Date: 20190330
  Receipt Date: 20190426
  Transmission Date: 20190711
  Serious: Yes (Death, Hospitalization, Other)
  Sender: FDA-Public Use
  Company Number: GB-CELLTRION INC.-2019GB019797

PATIENT

DRUGS (30)
  1. TRUXIMA [Suspect]
     Active Substance: RITUXIMAB-ABBS
     Dosage: 600 MG, EVERY 3 WEEKS
     Route: 042
     Dates: start: 20181207, end: 20181207
  2. SODIUM CHLORIDE 0.9% [Concomitant]
     Active Substance: SODIUM CHLORIDE
     Dosage: BLADDER WASHOUT, OD, PER CATHETER
  3. SODIUM CHLORIDE 0.9% [Concomitant]
     Active Substance: SODIUM CHLORIDE
     Dosage: BD, PRN (BLADDER WASHOUT) VIA CATHETER
  4. OXYCODONE [Concomitant]
     Active Substance: OXYCODONE
     Indication: BREAKTHROUGH PAIN
     Dosage: 10 MG, 4 HOURLY, PRN
     Route: 048
     Dates: start: 20190306
  5. OXYCODONE [Concomitant]
     Active Substance: OXYCODONE
     Dosage: 10 MG, 4 HOURLY
     Route: 048
  6. PEPTAC [Concomitant]
     Active Substance: RANITIDINE HYDROCHLORIDE
     Dosage: 10-20ML, QDS
     Route: 048
  7. GELCLAIR [ENOXOLONE;HYALURONATE SODIUM;POVIDONE] [Concomitant]
     Indication: ORAL DISCOMFORT
     Dosage: ONE SACHET, TDS, AS ORAL RINSE
  8. CITALOPRAM [Concomitant]
     Active Substance: CITALOPRAM HYDROBROMIDE
     Dosage: 20 MG FOR 1/52 FROM 18/12 THEN REDUCE TO 10MG FOR 1/52 THEN STOP, OD
     Route: 048
  9. KETAMINE [Concomitant]
     Active Substance: KETAMINE
     Dosage: UNK
  10. LONGTEC [Concomitant]
     Active Substance: OXYCODONE HYDROCHLORIDE
     Dosage: 20 MG BD (REDUCED DUE TO DROWSINESS)
     Route: 048
     Dates: start: 20190306
  11. ONDANSETRON [Concomitant]
     Active Substance: ONDANSETRON
     Dosage: 4 MG, PRN/TDS
     Route: 048
  12. LONGTEC [Concomitant]
     Active Substance: OXYCODONE HYDROCHLORIDE
     Indication: CANCER PAIN
     Dosage: 60 MG, BD
     Route: 048
     Dates: start: 20181206
  13. PARACETAMOL [Concomitant]
     Active Substance: ACETAMINOPHEN
     Indication: PAIN
     Dosage: 1 G, Q4HR (MAX 4G PRN)
  14. RANITIDINE. [Concomitant]
     Active Substance: RANITIDINE
     Indication: HYPONATRAEMIA
     Dosage: 150 MG, BD
     Route: 048
  15. TRUXIMA [Suspect]
     Active Substance: RITUXIMAB-ABBS
     Dosage: 600 MG, EVERY 3 WEEKS
     Route: 042
     Dates: start: 20181228, end: 20181228
  16. TRUXIMA [Suspect]
     Active Substance: RITUXIMAB-ABBS
     Dosage: 600 MG, EVERY 3 WEEKS
     Route: 042
     Dates: start: 20190118, end: 20190118
  17. LEVOTHYROXINE. [Concomitant]
     Active Substance: LEVOTHYROXINE
     Dosage: 125 MICROGRAM OD
     Route: 048
  18. TRUXIMA [Suspect]
     Active Substance: RITUXIMAB-ABBS
     Dosage: 600 MG, EVERY 3 WEEKS
     Route: 042
     Dates: start: 20190212, end: 20190212
  19. PARACETAMOL [Concomitant]
     Active Substance: ACETAMINOPHEN
     Dosage: 500 MG, QDS PRN
     Route: 048
  20. OXYCODONE [Concomitant]
     Active Substance: OXYCODONE
     Dosage: 10 MG, PRN, 1 HOURLY
     Route: 048
     Dates: start: 20190131
  21. BENZYDAMINE [Concomitant]
     Active Substance: BENZYDAMINE
     Dosage: 10 ML QDS (MOUTHWASH)
  22. PARACETAMOL [Concomitant]
     Active Substance: ACETAMINOPHEN
     Dosage: 1 G, QDS, PRN
     Route: 048
  23. OXYCODONE [Concomitant]
     Active Substance: OXYCODONE
     Indication: PAIN
     Dosage: 10 MG (HOURLY MAX: 80 MG/24 HOUR)
     Route: 048
     Dates: start: 20181206
  24. LONGTEC [Concomitant]
     Active Substance: OXYCODONE HYDROCHLORIDE
     Dosage: 60 MG, BD
     Route: 048
     Dates: start: 20181210
  25. LANSOPRAZOLE. [Concomitant]
     Active Substance: LANSOPRAZOLE
     Dosage: 30 MG OD
     Route: 048
  26. TRUXIMA [Suspect]
     Active Substance: RITUXIMAB-ABBS
     Indication: DIFFUSE LARGE B-CELL LYMPHOMA
     Dosage: 600 MG EVERY 3 WEEKS
     Route: 042
     Dates: start: 20181116, end: 20181116
  27. CHOP [Suspect]
     Active Substance: CYCLOPHOSPHAMIDE\DOXORUBICIN\PREDNISONE\VINCRISTINE
     Indication: DIFFUSE LARGE B-CELL LYMPHOMA
     Dosage: UNK
     Dates: start: 20190118
  28. SENNA [Concomitant]
     Active Substance: SENNA LEAF\SENNOSIDES\SENNOSIDES A AND B
     Dosage: 15 MG, ON
     Route: 048
  29. SENNA [Concomitant]
     Active Substance: SENNA LEAF\SENNOSIDES\SENNOSIDES A AND B
     Dosage: 2 TABS, ON
     Route: 048
  30. DIFFLAM [Concomitant]
     Active Substance: BENZYDAMINE HYDROCHLORIDE
     Indication: ORAL DISCOMFORT
     Dosage: 10 ML QDS
     Route: 048

REACTIONS (14)
  - Neutropenic sepsis [Recovering/Resolving]
  - Pyrexia [Unknown]
  - Death [Fatal]
  - Deep vein thrombosis [Recovered/Resolved]
  - Constipation [Recovered/Resolved]
  - Lymphoma [Unknown]
  - Neutropenic sepsis [Recovered/Resolved]
  - Herpes simplex [Recovering/Resolving]
  - Pneumonia [Recovered/Resolved]
  - Nausea [Recovered/Resolved]
  - Delirium [Unknown]
  - Hip fracture [Unknown]
  - Thrombocytopenia [Unknown]
  - Vomiting [Unknown]

NARRATIVE: CASE EVENT DATE: 20181228
